FAERS Safety Report 6244473-0 (Version None)
Quarter: 2009Q2

REPORT INFORMATION
  Report Type: 
  Country: None (occurrence: None)
  Receive Date: 20090623
  Receipt Date: 20090623
  Transmission Date: 20091009
  Serious: No
  Sender: FDA-Public Use
  Company Number: None

PATIENT
  Age: 35 Year
  Sex: Female
  Weight: 135.1719 kg

DRUGS (1)
  1. VALTREX [Suspect]
     Indication: HERPES SIMPLEX
     Dosage: 1 GRAM QD PO
     Route: 048
     Dates: start: 20090226

REACTIONS (4)
  - MUSCLE SPASMS [None]
  - NAUSEA [None]
  - PRURITUS [None]
  - URTICARIA [None]
